FAERS Safety Report 8518613-4 (Version None)
Quarter: 2012Q3

REPORT INFORMATION
  Report Type: 
  Country: None (occurrence: None)
  Receive Date: 20120718
  Receipt Date: 20110712
  Transmission Date: 20120928
  Serious: Yes (Death)
  Sender: FDA-Public Use
  Company Number: US-BRISTOL-MYERS SQUIBB COMPANY-15745409

PATIENT
  Age: 89 Year
  Sex: Male

DRUGS (8)
  1. COUMADIN [Suspect]
     Indication: ATRIAL FIBRILLATION
     Dosage: DURATION OF THERAPY:ALMOST 9 YEARS
     Route: 048
     Dates: start: 20010101
  2. ALLOPURINOL [Concomitant]
  3. COREG [Concomitant]
  4. MULTI-VITAMINS [Concomitant]
  5. CALCIUM CARBONATE [Concomitant]
  6. ZETIA [Concomitant]
     Indication: CHEST PAIN
  7. ZOLOFT [Concomitant]
  8. ARICEPT [Concomitant]

REACTIONS (2)
  - SUBDURAL HAEMATOMA [None]
  - FALL [None]
